FAERS Safety Report 13233577 (Version 1)
Quarter: 2017Q1

REPORT INFORMATION
  Report Type: Spontaneous
  Country: IT (occurrence: IT)
  Receive Date: 20170215
  Receipt Date: 20170215
  Transmission Date: 20170428
  Serious: Yes (Other)
  Sender: FDA-Public Use
  Company Number: IT-TEVA-738900ACC

PATIENT
  Age: 75 Year
  Sex: Male

DRUGS (2)
  1. ASPIRINETTA [Interacting]
     Active Substance: ASPIRIN
     Indication: CORONARY ARTERY DISEASE
     Dosage: 100 MILLIGRAM DAILY;
  2. CLOPIDOGREL [Suspect]
     Active Substance: CLOPIDOGREL BISULFATE
     Indication: CORONARY ARTERY DISEASE
     Dosage: 5000 MILLIGRAM DAILY;

REACTIONS (5)
  - Anaemia [Unknown]
  - Haemorrhage [Unknown]
  - Labelled drug-drug interaction medication error [Unknown]
  - Acute myocardial infarction [Unknown]
  - Drug administration error [Unknown]

NARRATIVE: CASE EVENT DATE: 20150501
